FAERS Safety Report 5511791-0 (Version None)
Quarter: 2007Q4

REPORT INFORMATION
  Report Type: 
  Country: None (occurrence: None)
  Receive Date: 20071109
  Receipt Date: 20071030
  Transmission Date: 20080405
  Serious: Yes (Other)
  Sender: FDA-Public Use
  Company Number: HU-PFIZER INC-2007091026

PATIENT
  Sex: Female

DRUGS (5)
  1. DIFLUCAN [Suspect]
     Indication: FUNGAL SKIN INFECTION
     Route: 048
     Dates: start: 20070701, end: 20070801
  2. RYTHMOL [Interacting]
     Route: 048
  3. NORVASC [Concomitant]
     Route: 048
  4. BETALOC [Concomitant]
     Route: 048
  5. CYNT [Concomitant]
     Route: 048

REACTIONS (2)
  - DRUG INTERACTION [None]
  - VENTRICULAR ARRHYTHMIA [None]
